FAERS Safety Report 4928091-X (Version None)
Quarter: 2006Q1

REPORT INFORMATION
  Report Type: 
  Country: None (occurrence: None)
  Receive Date: 20060223
  Receipt Date: 20060208
  Transmission Date: 20060701
  Serious: Yes (Hospitalization, Disabling, Other)
  Sender: FDA-Public Use
  Company Number: 2005-01455

PATIENT
  Age: 50 Year
  Sex: Female
  Weight: 50 kg

DRUGS (6)
  1. VELCADE [Suspect]
     Indication: MULTIPLE MYELOMA
     Dosage: 2.00 MG, 2/WEEK, INTRAVENOUS
     Route: 042
     Dates: start: 20050405, end: 20050703
  2. AVILAC (GALACTOSE, LACTOSE ANHYDROUS, LACTULOSE) [Concomitant]
  3. LOSEC (OMEPRAZOLE) [Concomitant]
  4. BONDORMIN (BROTIZOLAM) [Concomitant]
  5. CALTRATE (CALCIUM CARBONATE) [Concomitant]
  6. BONEFOS (CLODRONATE DISODIUM) [Concomitant]

REACTIONS (26)
  - ASTHENIA [None]
  - BLOOD ALKALINE PHOSPHATASE INCREASED [None]
  - BLOOD POTASSIUM DECREASED [None]
  - BONE PAIN [None]
  - BRONCHIECTASIS [None]
  - CARDIOMEGALY [None]
  - COMPRESSION FRACTURE [None]
  - DIAPHRAGMATIC HERNIA [None]
  - DRUG TOXICITY [None]
  - HAEMOGLOBIN DECREASED [None]
  - HEPATIC CYST [None]
  - HEPATOMEGALY [None]
  - INTERSTITIAL LUNG DISEASE [None]
  - LUNG INFILTRATION [None]
  - LYMPHOCYTE PERCENTAGE DECREASED [None]
  - MALIGNANT NEOPLASM PROGRESSION [None]
  - MULTIPLE MYELOMA [None]
  - NAUSEA [None]
  - OSTEOPOROTIC FRACTURE [None]
  - PLEURAL FIBROSIS [None]
  - PNEUMOCYSTIS JIROVECI PNEUMONIA [None]
  - PULMONARY FIBROSIS [None]
  - PYREXIA [None]
  - RESPIRATORY DISORDER [None]
  - RIB FRACTURE [None]
  - WHITE BLOOD CELL COUNT DECREASED [None]
